FAERS Safety Report 23555032 (Version 1)
Quarter: 2024Q1

REPORT INFORMATION
  Report Type: Spontaneous
  Country: US (occurrence: US)
  Receive Date: 20240222
  Receipt Date: 20240222
  Transmission Date: 20240410
  Serious: No
  Sender: FDA-Public Use
  Company Number: US-TPU-TPU-2024-00030

PATIENT
  Sex: Female

DRUGS (1)
  1. LIDOCAINE [Suspect]
     Active Substance: LIDOCAINE
     Indication: Migraine
     Dates: start: 20231020

REACTIONS (1)
  - Drug ineffective for unapproved indication [Unknown]
